FAERS Safety Report 13585490 (Version 4)
Quarter: 2018Q1

REPORT INFORMATION
  Report Type: Spontaneous
  Country: BR (occurrence: BR)
  Receive Date: 20170526
  Receipt Date: 20180209
  Transmission Date: 20180508
  Serious: Yes (Hospitalization, Other)
  Sender: FDA-Public Use
  Company Number: BR-PFIZER INC-2017224356

PATIENT
  Age: 68 Year
  Sex: Female

DRUGS (4)
  1. FRONTAL [Suspect]
     Active Substance: ALPRAZOLAM
     Indication: INSOMNIA
     Dosage: 2 TABLETS OF 1 MG PER DAY, ONE TABLET BEING IN THE MORNING AND ONE AT NIGHT
     Dates: start: 2000
  2. TAMOXIFEN CITRATE. [Suspect]
     Active Substance: TAMOXIFEN CITRATE
     Indication: BREAST CANCER
     Dosage: UNK
     Dates: start: 199910, end: 2004
  3. DIOVAN HCT [Concomitant]
     Active Substance: HYDROCHLOROTHIAZIDE\VALSARTAN
     Dosage: UNK
     Dates: start: 2000
  4. FRONTAL [Suspect]
     Active Substance: ALPRAZOLAM
     Indication: HALLUCINATION
     Dosage: 1 MG, 1X/DAY (ONE TABLET AT NIGHT)
     Dates: end: 201801

REACTIONS (11)
  - Feeling abnormal [Recovered/Resolved]
  - Dysstasia [Recovered/Resolved]
  - Head discomfort [Recovered/Resolved]
  - Hypothyroidism [Recovered/Resolved]
  - Breast cancer [Not Recovered/Not Resolved]
  - Thyroid mass [Not Recovered/Not Resolved]
  - Influenza [Not Recovered/Not Resolved]
  - Labyrinthitis [Recovered/Resolved]
  - Drug dependence [Not Recovered/Not Resolved]
  - Dizziness [Recovered/Resolved]
  - Disease recurrence [Not Recovered/Not Resolved]

NARRATIVE: CASE EVENT DATE: 201410
